FAERS Safety Report 23176436 (Version 1)
Quarter: 2023Q4

REPORT INFORMATION
  Report Type: Report from Study
  Country: CN (occurrence: CN)
  Receive Date: 20231113
  Receipt Date: 20231113
  Transmission Date: 20240110
  Serious: Yes (Death)
  Sender: FDA-Public Use
  Company Number: CN-PFIZER INC-202300359942

PATIENT

DRUGS (2)
  1. AXITINIB [Suspect]
     Active Substance: AXITINIB
     Indication: Renal cell carcinoma
     Dosage: 5 MG, 2X/DAY
     Route: 048
  2. TORIPALIMAB [Suspect]
     Active Substance: TORIPALIMAB
     Indication: Renal cell carcinoma
     Dosage: 240 MG, EVERY 3 WEEKS
     Route: 042

REACTIONS (1)
  - Death [Fatal]
